FAERS Safety Report 11927142 (Version 1)
Quarter: 2016Q1

REPORT INFORMATION
  Report Type: Spontaneous
  Country: US (occurrence: US)
  Receive Date: 20160119
  Receipt Date: 20160119
  Transmission Date: 20160526
  Serious: Yes (Hospitalization)
  Sender: FDA-Public Use
  Company Number: US-TURING PHARMACEUTICALS-2016TNG00001

PATIENT
  Sex: Male

DRUGS (2)
  1. DARAPRIM [Suspect]
     Active Substance: PYRIMETHAMINE
     Dosage: 8 TABLETS, ONCE
     Route: 048
     Dates: start: 201512, end: 201512
  2. DARAPRIM [Suspect]
     Active Substance: PYRIMETHAMINE
     Dosage: 2 TABLETS, UNK
     Route: 048
     Dates: start: 201512

REACTIONS (2)
  - Hospitalisation [Unknown]
  - General physical health deterioration [None]
